FAERS Safety Report 10373782 (Version 1)
Quarter: 2014Q1

REPORT INFORMATION
  Report Type: Spontaneous
  Country: US (occurrence: None)
  Receive Date: 20140306
  Receipt Date: 20140306
  Transmission Date: 20141002
  Serious: Yes (Hospitalization)
  Sender: FDA-Public Use
  Company Number: 163-21880-13074382

PATIENT
  Age: 85 Year
  Sex: Female
  Weight: 68.9 kg

DRUGS (6)
  1. REVLIMID (LENALIDOMIDE) (25 MILLIGRAM, CAPSULES) [Suspect]
     Indication: PLASMA CELL MYELOMA
     Route: 048
     Dates: start: 20100112
  2. MULTIVITAMINS (TABLETS) [Concomitant]
  3. VOLTAREN (DICLOFENAC SODIUM) [Concomitant]
  4. DECADRON (DEXAMETHASONE) [Concomitant]
  5. AMLODIPINE BESYLATE [Concomitant]
  6. BABY ASPIRIN (ACETYLSALICYLIC ACID) [Concomitant]

REACTIONS (3)
  - Pulmonary embolism [None]
  - Dry throat [None]
  - Cough [None]
